FAERS Safety Report 23579424 (Version 4)
Quarter: 2024Q2

REPORT INFORMATION
  Report Type: Spontaneous
  Country: US (occurrence: US)
  Receive Date: 20240229
  Receipt Date: 20240626
  Transmission Date: 20240716
  Serious: No
  Sender: FDA-Public Use
  Company Number: US-BRISTOL-MYERS SQUIBB COMPANY-2024-032708

PATIENT
  Age: 67 Year
  Sex: Male

DRUGS (1)
  1. REVLIMID [Suspect]
     Active Substance: LENALIDOMIDE
     Indication: Product used for unknown indication
     Dosage: FREQUENCY: QD FOR 21 DAYS AND 7 DAYS OFF
     Route: 048

REACTIONS (5)
  - Asthenia [Unknown]
  - Pain [Unknown]
  - Tremor [Unknown]
  - Nervousness [Unknown]
  - Product dose omission issue [Unknown]
